FAERS Safety Report 8533178-9 (Version None)
Quarter: 2012Q3

REPORT INFORMATION
  Report Type: 
  Country: None (occurrence: None)
  Receive Date: 20120724
  Receipt Date: 20120709
  Transmission Date: 20120928
  Serious: Yes (Hospitalization)
  Sender: FDA-Public Use
  Company Number: BE-009507513-2012SP029258

PATIENT

DRUGS (4)
  1. VICTRELIS [Suspect]
     Indication: HEPATITIS C
     Dosage: 2400 MG, TID
     Dates: start: 20120528, end: 20120530
  2. REBETOL [Suspect]
     Indication: HEPATITIS C
     Dosage: 1000 MG, BID
     Dates: start: 20120507, end: 20120530
  3. PEG-INTRON [Suspect]
     Indication: HEPATITIS C
     Dosage: 100 MICROGRAMS, QW
     Dates: start: 20120507, end: 20120528
  4. REBETOL [Suspect]
     Dosage: 800 MG, BID
     Dates: start: 20120501

REACTIONS (5)
  - ANAEMIA [None]
  - AMNESIA [None]
  - LUNG DISORDER [None]
  - RENAL DISORDER [None]
  - BLOOD DISORDER [None]
